FAERS Safety Report 20004410 (Version 1)
Quarter: 2021Q4

REPORT INFORMATION
  Report Type: Spontaneous
  Country: IR (occurrence: IR)
  Receive Date: 20211027
  Receipt Date: 20211027
  Transmission Date: 20220304
  Serious: Yes (Hospitalization, Other)
  Sender: FDA-Public Use
  Company Number: IR-CASPER PHARMA LLC-2021CAS000545

PATIENT
  Age: 23 Year
  Sex: Female

DRUGS (1)
  1. BISMUTH SUBSALICYLATE\METRONIDAZOLE\TETRACYCLINE HYDROCHLORIDE [Suspect]
     Active Substance: BISMUTH SUBSALICYLATE\METRONIDAZOLE\TETRACYCLINE HYDROCHLORIDE
     Indication: Blastocystis infection
     Dosage: 750 MILLIGRAM, TID
     Route: 048

REACTIONS (1)
  - Deafness neurosensory [Recovering/Resolving]
